FAERS Safety Report 4783416-3 (Version None)
Quarter: 2005Q3

REPORT INFORMATION
  Report Type: 
  Country: None (occurrence: None)
  Receive Date: 20050929
  Receipt Date: 20050707
  Transmission Date: 20060218
  Serious: Yes (Hospitalization)
  Sender: FDA-Public Use
  Company Number: US-BRISTOL-MYERS SQUIBB COMPANY-13030101

PATIENT
  Age: 53 Year
  Sex: Male

DRUGS (3)
  1. BARACLUDE [Suspect]
     Indication: HEPATITIS B
     Route: 048
     Dates: start: 20050615, end: 20050706
  2. TOPROL-XL [Concomitant]
  3. LOTREL [Concomitant]

REACTIONS (2)
  - LOCAL SWELLING [None]
  - VOMITING [None]
